FAERS Safety Report 14068072 (Version 2)
Quarter: 2018Q1

REPORT INFORMATION
  Report Type: Spontaneous
  Country: US (occurrence: US)
  Receive Date: 20171010
  Receipt Date: 20180111
  Transmission Date: 20180508
  Serious: No
  Sender: FDA-Public Use
  Company Number: PHEH2017US032067

PATIENT
  Sex: Female

DRUGS (1)
  1. SANDOSTATIN LAR DEPOT [Suspect]
     Active Substance: OCTREOTIDE ACETATE
     Indication: PRODUCT USED FOR UNKNOWN INDICATION
     Dosage: 40 MG (TWO DOSAGE OF 20 MG), QMO
     Route: 030

REACTIONS (1)
  - Needle issue [Unknown]

NARRATIVE: CASE EVENT DATE: 20171002
